FAERS Safety Report 23377581 (Version 1)
Quarter: 2024Q1

REPORT INFORMATION
  Report Type: Spontaneous
  Country: US (occurrence: US)
  Receive Date: 20240108
  Receipt Date: 20240108
  Transmission Date: 20240410
  Serious: No
  Sender: FDA-Public Use
  Company Number: US-002147023-NVSC2024US002754

PATIENT
  Sex: Male

DRUGS (1)
  1. PROMACTA [Suspect]
     Active Substance: ELTROMBOPAG OLAMINE
     Indication: Anaemia
     Dosage: 50 MG, QD
     Route: 065
     Dates: start: 202310

REACTIONS (1)
  - Fatigue [Unknown]
